FAERS Safety Report 5157819-1 (Version None)
Quarter: 2006Q4

REPORT INFORMATION
  Report Type: 
  Country: None (occurrence: None)
  Receive Date: 20061120
  Receipt Date: 20061120
  Transmission Date: 20070319
  Serious: Yes (Life-Threatening, Hospitalization)
  Sender: FDA-Public Use
  Company Number: None

PATIENT
  Age: 46 Year
  Sex: Female

DRUGS (1)
  1. IRON DEXTRAN [Suspect]
     Dosage: TEST DOSE IV
     Route: 042
     Dates: start: 20050414, end: 20050414

REACTIONS (1)
  - MUSCULOSKELETAL CHEST PAIN [None]
